FAERS Safety Report 7437720-0 (Version None)
Quarter: 2011Q2

REPORT INFORMATION
  Report Type: 
  Country: None (occurrence: None)
  Receive Date: 20110426
  Receipt Date: 20110404
  Transmission Date: 20111010
  Serious: No
  Sender: FDA-Public Use
  Company Number: US-B.I. PHARMACEUTICALS,INC./RIDGEFIELD-2011-BP-10332BP

PATIENT
  Age: 63 Year
  Sex: Female

DRUGS (4)
  1. ACIPHEX [Concomitant]
     Indication: GASTROOESOPHAGEAL REFLUX DISEASE
  2. SPIRIVA [Suspect]
     Indication: CHRONIC OBSTRUCTIVE PULMONARY DISEASE
     Dosage: 18 MCG
     Route: 055
     Dates: start: 20090101
  3. ZOLOFT [Concomitant]
     Indication: DEPRESSION
  4. LORAZEPAM [Concomitant]
     Indication: ANXIETY

REACTIONS (1)
  - DRUG INEFFECTIVE [None]
